FAERS Safety Report 6168758-1 (Version None)
Quarter: 2009Q2

REPORT INFORMATION
  Report Type: 
  Country: None (occurrence: None)
  Receive Date: 20090427
  Receipt Date: 20090421
  Transmission Date: 20091009
  Serious: Yes (Hospitalization)
  Sender: FDA-Public Use
  Company Number: US-MERCK-0904USA03361

PATIENT
  Age: 59 Year
  Sex: Female

DRUGS (13)
  1. IVEMEND [Suspect]
     Indication: PROPHYLAXIS OF NAUSEA AND VOMITING
     Route: 042
     Dates: start: 20090204
  2. IVEMEND [Suspect]
     Route: 042
     Dates: start: 20090205
  3. IVEMEND [Suspect]
     Route: 042
     Dates: start: 20090225
  4. IVEMEND [Suspect]
     Route: 042
     Dates: start: 20090318
  5. IVEMEND [Suspect]
     Route: 042
     Dates: start: 20090206
  6. IVEMEND [Suspect]
     Route: 042
     Dates: start: 20090226
  7. IVEMEND [Suspect]
     Route: 042
     Dates: start: 20090227
  8. IVEMEND [Suspect]
     Route: 042
     Dates: start: 20090319
  9. IVEMEND [Suspect]
     Route: 042
     Dates: start: 20090320
  10. TAXOTERE [Concomitant]
     Indication: BREAST CANCER
     Route: 065
  11. DOXORUBICIN [Concomitant]
     Indication: BREAST CANCER
     Route: 065
  12. CYTOXAN [Concomitant]
     Indication: BREAST CANCER
     Route: 065
  13. EMEND [Concomitant]
     Route: 048

REACTIONS (2)
  - ERYTHEMA [None]
  - SKIN REACTION [None]
